FAERS Safety Report 5358195-1 (Version None)
Quarter: 2007Q2

REPORT INFORMATION
  Report Type: 
  Country: None (occurrence: None)
  Receive Date: 20070530
  Receipt Date: 20061017
  Transmission Date: 20071010
  Serious: Yes (Hospitalization)
  Sender: FDA-Public Use
  Company Number: US200605001981

PATIENT
  Sex: Male
  Weight: 171.4 kg

DRUGS (2)
  1. ZYPREXA [Suspect]
     Dosage: 10 MG
     Dates: start: 20020601, end: 20030201
  2. INSULIN (INSULIN) [Concomitant]

REACTIONS (1)
  - DIABETES MELLITUS [None]
